FAERS Safety Report 6993061-7 (Version None)
Quarter: 2010Q3

REPORT INFORMATION
  Report Type: 
  Country: None (occurrence: None)
  Receive Date: 20100917
  Receipt Date: 20100204
  Transmission Date: 20110219
  Serious: No
  Sender: FDA-Public Use
  Company Number: US-ASTRAZENECA-2009SE20931

PATIENT
  Age: 44 Year
  Sex: Female
  Weight: 108.9 kg

DRUGS (4)
  1. SEROQUEL [Suspect]
     Indication: BIPOLAR DISORDER
     Dosage: 600-800MG
     Route: 048
     Dates: start: 20010101
  2. KLONOPIN [Concomitant]
     Indication: DEPRESSION
  3. ZOCOR [Concomitant]
  4. LAMICTAL [Concomitant]
     Dates: start: 20080101, end: 20090101

REACTIONS (3)
  - GESTATIONAL DIABETES [None]
  - OBESITY [None]
  - TYPE 2 DIABETES MELLITUS [None]
